FAERS Safety Report 18915696 (Version 2)
Quarter: 2021Q1

REPORT INFORMATION
  Report Type: Report from Study
  Country: NZ (occurrence: NZ)
  Receive Date: 20210219
  Receipt Date: 20210222
  Transmission Date: 20210420
  Serious: Yes (Other)
  Sender: FDA-Public Use
  Company Number: NZ-PFIZER INC-2021133343

PATIENT

DRUGS (2)
  1. MORPHINE SULFATE. [Suspect]
     Active Substance: MORPHINE SULFATE
     Indication: CHEST INJURY
     Dosage: UNK, (3 MG WAS DISSOLVED IN A VOLUME OF NORMAL SALINE)
     Route: 008
  2. BUPIVACAINE. [Suspect]
     Active Substance: BUPIVACAINE
     Indication: CHEST INJURY
     Dosage: UNK
     Route: 008

REACTIONS (1)
  - Extradural abscess [Recovered/Resolved]
